FAERS Safety Report 25169621 (Version 1)
Quarter: 2025Q2

REPORT INFORMATION
  Report Type: Spontaneous
  Country: GB (occurrence: GB)
  Receive Date: 20250407
  Receipt Date: 20250407
  Transmission Date: 20250716
  Serious: Yes (Other)
  Sender: MYLAN
  Company Number: None

PATIENT
  Age: 76 Year
  Sex: Male
  Weight: 67 kg

DRUGS (8)
  1. ATORVASTATIN [Suspect]
     Active Substance: ATORVASTATIN
     Indication: Aortic aneurysm
     Dates: start: 20250318, end: 20250325
  2. ATORVASTATIN [Suspect]
     Active Substance: ATORVASTATIN
     Route: 048
     Dates: start: 20250318, end: 20250325
  3. ATORVASTATIN [Suspect]
     Active Substance: ATORVASTATIN
     Route: 048
     Dates: start: 20250318, end: 20250325
  4. ATORVASTATIN [Suspect]
     Active Substance: ATORVASTATIN
     Dates: start: 20250318, end: 20250325
  5. TAMSULOSIN [Concomitant]
     Active Substance: TAMSULOSIN
     Indication: Urinary retention
  6. TAMSULOSIN [Concomitant]
     Active Substance: TAMSULOSIN
     Route: 065
  7. TAMSULOSIN [Concomitant]
     Active Substance: TAMSULOSIN
     Route: 065
  8. TAMSULOSIN [Concomitant]
     Active Substance: TAMSULOSIN

REACTIONS (3)
  - Vertigo [Recovering/Resolving]
  - Headache [Unknown]
  - Nausea [Unknown]

NARRATIVE: CASE EVENT DATE: 20250318
